FAERS Safety Report 12173465 (Version 2)
Quarter: 2016Q1

REPORT INFORMATION
  Report Type: Spontaneous
  Country: US (occurrence: US)
  Receive Date: 20160311
  Receipt Date: 20160317
  Transmission Date: 20160526
  Serious: No
  Sender: FDA-Public Use
  Company Number: US-GALDERMA-US15004633

PATIENT
  Age: 41 Year
  Sex: Female

DRUGS (3)
  1. TRI-LUMA [Suspect]
     Active Substance: FLUOCINOLONE ACETONIDE\HYDROQUINONE\TRETINOIN
     Indication: CHLOASMA
     Route: 061
     Dates: start: 20150601, end: 20150604
  2. DOVE BAR SOAP [Concomitant]
     Indication: THERAPEUTIC SKIN CARE TOPICAL
     Route: 061
  3. ATENOLOL. [Concomitant]
     Active Substance: ATENOLOL
     Indication: PALPITATIONS
     Dosage: 12.5 MG
     Route: 048
     Dates: start: 2012

REACTIONS (5)
  - Erythema [Recovering/Resolving]
  - Skin irritation [Recovering/Resolving]
  - Skin exfoliation [Recovering/Resolving]
  - Paraesthesia [Recovered/Resolved]
  - Skin burning sensation [Recovering/Resolving]

NARRATIVE: CASE EVENT DATE: 20150601
